FAERS Safety Report 24902868 (Version 1)
Quarter: 2025Q1

REPORT INFORMATION
  Report Type: Report from Study
  Country: FR (occurrence: None)
  Receive Date: 20250130
  Receipt Date: 20250130
  Transmission Date: 20250409
  Serious: Yes (Other)
  Sender: Valinor Pharma
  Company Number: FR-Valinor Pharma, LLC-VLR202410-000122

PATIENT
  Age: 30 Year
  Sex: Female

DRUGS (1)
  1. INVESTIGATIONAL PRODUCT [Suspect]
     Active Substance: INVESTIGATIONAL PRODUCT
     Indication: Gastrointestinal motility disorder
     Route: 065
     Dates: start: 20240906, end: 20240909

REACTIONS (2)
  - Colitis [Recovered/Resolved]
  - Vasospasm [Recovered/Resolved]

NARRATIVE: CASE EVENT DATE: 20240908
